FAERS Safety Report 11806411 (Version 1)
Quarter: 2015Q4

REPORT INFORMATION
  Report Type: Spontaneous
  Country: US (occurrence: US)
  Receive Date: 20151207
  Receipt Date: 20151207
  Transmission Date: 20160305
  Serious: No
  Sender: FDA-Public Use
  Company Number: US-REGENERON PHARMACEUTICALS, INC.-2015-12715

PATIENT

DRUGS (3)
  1. BETADINE [Suspect]
     Active Substance: POVIDONE-IODINE
  2. EYLEA [Suspect]
     Active Substance: AFLIBERCEPT
     Dosage: OD
     Route: 031
     Dates: start: 20150929, end: 20150929
  3. EYLEA [Suspect]
     Active Substance: AFLIBERCEPT
     Indication: DIABETIC RETINOPATHY
     Dosage: OD
     Route: 031

REACTIONS (4)
  - Lacrimation increased [Not Recovered/Not Resolved]
  - Eyelid oedema [Not Recovered/Not Resolved]
  - Ocular hyperaemia [Not Recovered/Not Resolved]
  - Eye pain [Not Recovered/Not Resolved]

NARRATIVE: CASE EVENT DATE: 20150929
